FAERS Safety Report 4905338-7 (Version None)
Quarter: 2006Q1

REPORT INFORMATION
  Report Type: 
  Country: None (occurrence: None)
  Receive Date: 20060207
  Receipt Date: 20060207
  Transmission Date: 20060701
  Serious: Yes (Hospitalization)
  Sender: FDA-Public Use
  Company Number: None

PATIENT
  Age: 58 Year
  Sex: Male
  Weight: 96.5 kg

DRUGS (2)
  1. QUETIAPINE FUMARATE [Suspect]
     Indication: POST-TRAUMATIC STRESS DISORDER
     Dosage: 25-50 MG   BEDTIME   PO
     Route: 048
     Dates: start: 20050711, end: 20050810
  2. QUETIAPINE FUMARATE [Suspect]
     Indication: PSYCHOTIC DISORDER
     Dosage: 25-50 MG   BEDTIME   PO
     Route: 048
     Dates: start: 20050711, end: 20050810

REACTIONS (4)
  - ABNORMAL BEHAVIOUR [None]
  - NIGHTMARE [None]
  - POST-TRAUMATIC STRESS DISORDER [None]
  - SCREAMING [None]
